FAERS Safety Report 10822387 (Version 2)
Quarter: 2015Q1

REPORT INFORMATION
  Report Type: Spontaneous
  Country: RO (occurrence: RO)
  Receive Date: 20150218
  Receipt Date: 20150227
  Transmission Date: 20150721
  Serious: Yes (Hospitalization, Other)
  Sender: FDA-Public Use
  Company Number: RO-ASTRAZENECA-2015SE15044

PATIENT
  Age: 797 Month
  Sex: Female

DRUGS (3)
  1. FASLODEX [Suspect]
     Active Substance: FULVESTRANT
     Indication: BREAST CANCER
     Route: 030
     Dates: start: 20130801, end: 20150105
  2. FASLODEX [Suspect]
     Active Substance: FULVESTRANT
     Indication: METASTASES TO BONE
     Route: 030
     Dates: start: 20130801, end: 20150105
  3. ACID IBANDRONIC [Concomitant]

REACTIONS (1)
  - Peripheral embolism [Unknown]

NARRATIVE: CASE EVENT DATE: 201502
